FAERS Safety Report 10195954 (Version 1)
Quarter: 2014Q2

REPORT INFORMATION
  Report Type: Report from Study
  Country: US (occurrence: US)
  Receive Date: 20140527
  Receipt Date: 20140527
  Transmission Date: 20141212
  Serious: No
  Sender: FDA-Public Use
  Company Number: PHEH2014US010267

PATIENT
  Age: 68 Year
  Sex: Female

DRUGS (8)
  1. TASIGNA [Suspect]
     Indication: CHRONIC MYELOID LEUKAEMIA
     Dosage: 400 MG, BID
     Route: 048
     Dates: start: 20110317
  2. KEPPRA [Concomitant]
     Dosage: UNK UKN, UNK
  3. TEGRETOL [Concomitant]
     Dosage: UNK UKN, UNK
  4. LISINOPRIL [Concomitant]
     Dosage: UNK UKN, UNK
  5. METOPROLOL [Concomitant]
     Dosage: UNK UKN, UNK
  6. ISOSORBIDE [Concomitant]
     Dosage: UNK UKN, UNK
  7. VIT D [Concomitant]
     Dosage: UNK UKN, UNK
  8. IRON [Concomitant]
     Dosage: UNK UKN, UNK

REACTIONS (2)
  - Fatigue [Not Recovered/Not Resolved]
  - Tremor [Not Recovered/Not Resolved]
